FAERS Safety Report 7392421-2 (Version None)
Quarter: 2011Q1

REPORT INFORMATION
  Report Type: 
  Country: None (occurrence: None)
  Receive Date: 20110330
  Receipt Date: 20110330
  Transmission Date: 20110831
  Serious: Yes (Hospitalization)
  Sender: FDA-Public Use
  Company Number: None

PATIENT
  Age: 38 Year
  Sex: Female
  Weight: 49.8957 kg

DRUGS (5)
  1. VAGINAL SUPP [Concomitant]
  2. TEMAZEPAM [Concomitant]
  3. CLINDAMYCINE [Concomitant]
  4. MIRTAZAPINE [Suspect]
     Indication: DEPRESSION
     Dosage: 30 MG BEDTIME PO
     Route: 048
     Dates: start: 20110114, end: 20110120
  5. RISPERIDONE [Concomitant]

REACTIONS (1)
  - THROMBOCYTOPENIA [None]
